FAERS Safety Report 17185117 (Version 1)
Quarter: 2019Q4

REPORT INFORMATION
  Report Type: Spontaneous
  Country: JP (occurrence: JP)
  Receive Date: 20191220
  Receipt Date: 20191220
  Transmission Date: 20200122
  Serious: Yes (Other)
  Sender: FDA-Public Use
  Company Number: JP-OTSUKA-2019_042093

PATIENT
  Age: 47 Year
  Sex: Male

DRUGS (1)
  1. SAMSCA [Suspect]
     Active Substance: TOLVAPTAN
     Indication: PRODUCT USED FOR UNKNOWN INDICATION
     Dosage: 120MG/DAY, FREQUENCY UNKNOWN
     Route: 065
     Dates: start: 20190420, end: 201910

REACTIONS (1)
  - Hepatic function abnormal [Unknown]
